FAERS Safety Report 25064842 (Version 1)
Quarter: 2025Q1

REPORT INFORMATION
  Report Type: Report from Study
  Country: US (occurrence: US)
  Receive Date: 20250311
  Receipt Date: 20250311
  Transmission Date: 20250409
  Serious: Yes (Other)
  Sender: JOHNSON AND JOHNSON
  Company Number: US-JNJFOC-20250279788

PATIENT
  Age: 6 Decade
  Sex: Female

DRUGS (2)
  1. UPTRAVI [Suspect]
     Active Substance: SELEXIPAG
     Indication: Pulmonary arterial hypertension
     Route: 048
     Dates: start: 202406
  2. WINREVAIR [Concomitant]
     Active Substance: SOTATERCEPT-CSRK

REACTIONS (5)
  - Oxygen saturation decreased [Unknown]
  - Chest pain [Unknown]
  - Abdominal distension [Unknown]
  - Oedema peripheral [Unknown]
  - Dyspnoea exertional [Unknown]
